FAERS Safety Report 6210324-3 (Version None)
Quarter: 2009Q2

REPORT INFORMATION
  Report Type: 
  Country: None (occurrence: None)
  Receive Date: 20090529
  Receipt Date: 20090529
  Transmission Date: 20091009
  Serious: Yes (Other)
  Sender: FDA-Public Use
  Company Number: None

PATIENT
  Age: 39 Year
  Sex: Female

DRUGS (1)
  1. TAMIFLU [Suspect]
     Indication: INFLUENZA
     Dosage: 75 MG BID PO
     Route: 048
     Dates: start: 20090515, end: 20090517

REACTIONS (5)
  - DISTURBANCE IN ATTENTION [None]
  - INSOMNIA [None]
  - MENTAL STATUS CHANGES [None]
  - NEGATIVE THOUGHTS [None]
  - SPEECH DISORDER [None]
